FAERS Safety Report 10277244 (Version 1)
Quarter: 2014Q3

REPORT INFORMATION
  Report Type: Spontaneous
  Country: BR (occurrence: BR)
  Receive Date: 20140703
  Receipt Date: 20140703
  Transmission Date: 20150326
  Serious: Yes (Other)
  Sender: FDA-Public Use
  Company Number: BR-PFIZER INC-2014179143

PATIENT
  Age: 42 Year
  Sex: Female
  Weight: 92 kg

DRUGS (3)
  1. VELIJA [Concomitant]
     Indication: FIBROMYALGIA
     Dosage: 1 DF, DAILY (IN THE MORNING)
     Route: 048
     Dates: start: 20140626
  2. LYRICA [Suspect]
     Active Substance: PREGABALIN
     Indication: DEPRESSION
  3. LYRICA [Suspect]
     Active Substance: PREGABALIN
     Indication: FIBROMYALGIA
     Dosage: UNK
     Route: 048
     Dates: end: 2011

REACTIONS (2)
  - Pain [Unknown]
  - Infarction [Unknown]
